FAERS Safety Report 12172162 (Version 2)
Quarter: 2016Q1

REPORT INFORMATION
  Report Type: Spontaneous
  Country: JP (occurrence: JP)
  Receive Date: 20160311
  Receipt Date: 20160311
  Transmission Date: 20160526
  Serious: Yes (Other)
  Sender: FDA-Public Use
  Company Number: JP-ACTAVIS-2016-04543

PATIENT
  Age: 30 Year
  Sex: Female

DRUGS (9)
  1. CYCLOPHOSPHAMIDE. [Suspect]
     Active Substance: CYCLOPHOSPHAMIDE
     Indication: MYCOSIS FUNGOIDES
     Dosage: 750 MG/M2, DAY 1, EVERY 4 WEEKS
     Route: 065
  2. BETAMETHASONE. [Concomitant]
     Active Substance: BETAMETHASONE
     Indication: MYCOSIS FUNGOIDES
     Dosage: 4 MG, DAILY
  3. VINCRISTINE (UNKNOWN) [Suspect]
     Active Substance: VINCRISTINE
     Indication: MYCOSIS FUNGOIDES
     Dosage: 1.4 MG/M2, DAY 1, EVERY 4 WEEKS
     Route: 065
  4. CYCLOPHOSPHAMIDE. [Suspect]
     Active Substance: CYCLOPHOSPHAMIDE
     Dosage: 750 MG/M2, DAY 1, EVERY 4 WEEKS
     Route: 065
  5. PREDNISOLONE (UNKNOWN) [Suspect]
     Active Substance: PREDNISOLONE
     Indication: MYCOSIS FUNGOIDES
     Dosage: 100 MG/DAY, DAYS 1-5, EVERY 4 WEEKS
     Route: 065
  6. DOXORUBICIN (UNKNOWN) [Suspect]
     Active Substance: DOXORUBICIN
     Indication: MYCOSIS FUNGOIDES
     Dosage: 50 MG/M2, DAY 1, EVERY 4 WEEKS
     Route: 065
  7. GEMCITABINE [Suspect]
     Active Substance: GEMCITABINE\GEMCITABINE HYDROCHLORIDE
     Indication: MYCOSIS FUNGOIDES
     Dosage: 1200 MG/M2, 1/WEEK WITH 3 WEEKS ON AND 1 WEEKS OFF
     Route: 065
  8. METHOTREXATE [Concomitant]
     Active Substance: METHOTREXATE
     Indication: MYCOSIS FUNGOIDES
     Dosage: 10 MG, 1/WEEK
     Route: 065
  9. INTERFERON GAMMA NOS [Concomitant]
     Active Substance: INTERFERON GAMMA
     Indication: MYCOSIS FUNGOIDES
     Dosage: 2 MIL JRU/DAY
     Route: 042

REACTIONS (6)
  - Leukopenia [Unknown]
  - Fatigue [Unknown]
  - Neutropenia [Unknown]
  - Gastrointestinal disorder [Unknown]
  - Bone marrow failure [Unknown]
  - Alopecia [Unknown]
